FAERS Safety Report 10339432 (Version 1)
Quarter: 2014Q3

REPORT INFORMATION
  Report Type: Spontaneous
  Country: US (occurrence: None)
  Receive Date: 20140722
  Receipt Date: 20140722
  Transmission Date: 20150326
  Serious: Yes (Hospitalization)
  Sender: FDA-Public Use
  Company Number: None

PATIENT
  Age: 54 Year
  Sex: Female

DRUGS (1)
  1. NEXAVAR [Suspect]
     Active Substance: SORAFENIB
     Indication: RENAL CELL CARCINOMA
     Dosage: 200MG, TWICE A DAY, BY MOUTH
     Route: 048
     Dates: start: 20140701, end: 20140718

REACTIONS (1)
  - Investigation [None]

NARRATIVE: CASE EVENT DATE: 20140718
